FAERS Safety Report 12977234 (Version 1)
Quarter: 2016Q4

REPORT INFORMATION
  Report Type: Spontaneous
  Country: BH (occurrence: BH)
  Receive Date: 20161128
  Receipt Date: 20161128
  Transmission Date: 20170207
  Serious: Yes (Hospitalization, Other)
  Sender: FDA-Public Use
  Company Number: BH-ACCORD-045778

PATIENT
  Age: 56 Year
  Sex: Male

DRUGS (7)
  1. INSULIN [Concomitant]
     Active Substance: INSULIN NOS
     Dosage: ALSO RECEIVED AT 17 IU?ALSO AT 14 IU AFTER 4 YEARS OF TRANSPLANT
  2. METFORMIN [Concomitant]
     Active Substance: METFORMIN HYDROCHLORIDE
  3. LIRAGLUTID [Concomitant]
     Active Substance: LIRAGLUTIDE
  4. TACROLIMUS. [Suspect]
     Active Substance: TACROLIMUS
     Indication: IMMUNOSUPPRESSANT DRUG THERAPY
     Dosage: 2 MG AM IN THE MORNING AND 2.5 MG PM IN EVENING
  5. MYCOPHENOLIC ACID. [Suspect]
     Active Substance: MYCOPHENOLIC ACID
     Indication: IMMUNOSUPPRESSANT DRUG THERAPY
  6. INSULIN ASPART [Concomitant]
     Active Substance: INSULIN ASPART
     Dosage: BEFORE EACH MEAL
  7. INSULIN GLARGINE [Concomitant]
     Active Substance: INSULIN GLARGINE
     Indication: HYPERGLYCAEMIA
     Dosage: BEFORE EACH MEAL

REACTIONS (5)
  - Hypertension [Unknown]
  - Chronic kidney disease [Unknown]
  - Neutropenia [Unknown]
  - Mouth ulceration [Unknown]
  - Respiratory tract infection [Unknown]

NARRATIVE: CASE EVENT DATE: 2012
